FAERS Safety Report 11803502 (Version 1)
Quarter: 2015Q4

REPORT INFORMATION
  Report Type: Spontaneous
  Country: US (occurrence: US)
  Receive Date: 20151204
  Receipt Date: 20151204
  Transmission Date: 20160305
  Serious: Yes (Life-Threatening, Other)
  Sender: FDA-Public Use
  Company Number: US-TEVA-615093USA

PATIENT
  Age: 36 Year
  Sex: Male

DRUGS (1)
  1. COPAXONE [Suspect]
     Active Substance: GLATIRAMER ACETATE
     Indication: MULTIPLE SCLEROSIS
     Dates: start: 20150831

REACTIONS (9)
  - Swelling face [Unknown]
  - Adverse drug reaction [Unknown]
  - Mouth swelling [Unknown]
  - Presyncope [Unknown]
  - Eyelid oedema [Unknown]
  - Pharyngeal oedema [Unknown]
  - Dyspnoea [Unknown]
  - Accidental overdose [Unknown]
  - Erythema [Unknown]

NARRATIVE: CASE EVENT DATE: 20151120
